FAERS Safety Report 18303361 (Version 1)
Quarter: 2020Q3

REPORT INFORMATION
  Report Type: Report from Study
  Country: CA (occurrence: CA)
  Receive Date: 20200923
  Receipt Date: 20200923
  Transmission Date: 20201103
  Serious: Yes (Other)
  Sender: FDA-Public Use
  Company Number: CA-JNJFOC-20200926191

PATIENT
  Age: 15 Year
  Sex: Female
  Weight: 45 kg

DRUGS (2)
  1. REMICADE [Suspect]
     Active Substance: INFLIXIMAB
     Indication: CROHN^S DISEASE
     Route: 015
     Dates: start: 20180103
  2. REMICADE [Suspect]
     Active Substance: INFLIXIMAB
     Route: 015

REACTIONS (2)
  - Crohn^s disease [Unknown]
  - Drug level decreased [Unknown]
